FAERS Safety Report 9759881 (Version 2)
Quarter: 2014Q1

REPORT INFORMATION
  Report Type: Spontaneous
  Country: IT (occurrence: IT)
  Receive Date: 20131216
  Receipt Date: 20140108
  Transmission Date: 20141002
  Serious: Yes (Other)
  Sender: FDA-Public Use
  Company Number: IT-FRI-1000052219

PATIENT
  Age: 61 Year
  Sex: Male

DRUGS (4)
  1. NEBIVOLOL [Suspect]
     Dates: start: 20120911
  2. METFORMIN [Suspect]
     Dates: start: 20120911
  3. TAREG [Suspect]
     Dates: start: 20120911
  4. ZYLORIC [Suspect]
     Dates: start: 20120911

REACTIONS (1)
  - Tongue oedema [Recovering/Resolving]
